FAERS Safety Report 8379284-3 (Version None)
Quarter: 2012Q2

REPORT INFORMATION
  Report Type: 
  Country: None (occurrence: None)
  Receive Date: 20120523
  Receipt Date: 20120515
  Transmission Date: 20120825
  Serious: Yes (Other)
  Sender: FDA-Public Use
  Company Number: US-US-EMD SERONO, INC.-7055486

PATIENT
  Sex: Female
  Weight: 61 kg

DRUGS (4)
  1. UNKNOWN MEDICATION [Concomitant]
     Indication: BLADDER DISORDER
  2. UNSPECIFIED MEDICATION [Concomitant]
     Indication: GASTROOESOPHAGEAL REFLUX DISEASE
  3. REBIF [Suspect]
     Route: 058
     Dates: start: 20120101
  4. REBIF [Suspect]
     Indication: MULTIPLE SCLEROSIS
     Route: 058
     Dates: start: 20040202, end: 20110901

REACTIONS (1)
  - RENAL NEOPLASM [None]
